FAERS Safety Report 6057952-6 (Version None)
Quarter: 2009Q1

REPORT INFORMATION
  Report Type: 
  Country: None (occurrence: None)
  Receive Date: 20090129
  Receipt Date: 20090121
  Transmission Date: 20090719
  Serious: Yes (Hospitalization)
  Sender: FDA-Public Use
  Company Number: PL-B.I. PHARMACEUTICALS,INC./RIDGEFIELD-2008-AP-00297AP

PATIENT
  Sex: Female
  Weight: 76.4 kg

DRUGS (12)
  1. MICARDIS [Suspect]
     Indication: HYPERTENSION
     Dosage: 80MG
     Route: 048
     Dates: start: 20081016, end: 20081110
  2. MICARDIS [Suspect]
     Dosage: 40MG
     Route: 048
     Dates: start: 20081110, end: 20081121
  3. BISOPROMERC [Concomitant]
     Dosage: 10MG
     Route: 048
  4. VEROSPIRON [Concomitant]
  5. BEMECOR [Concomitant]
     Route: 048
  6. FUROSEMIDUM [Concomitant]
     Dosage: 80MG
     Route: 048
  7. PREDUCTAL [Concomitant]
  8. ACENOCUMAROL [Concomitant]
     Route: 048
  9. IBUPROM [Concomitant]
     Dosage: 1200MG
     Route: 048
  10. KALDYUM [Concomitant]
     Dosage: 2X1
     Route: 048
  11. LETROX [Concomitant]
     Dosage: 25MCG
  12. SIMVASTEROL [Concomitant]
     Dosage: 20MG

REACTIONS (4)
  - ASTHENIA [None]
  - DISORIENTATION [None]
  - PERICARDIAL EFFUSION [None]
  - SPEECH DISORDER [None]
